FAERS Safety Report 25281302 (Version 2)
Quarter: 2025Q3

REPORT INFORMATION
  Report Type: Report from Study
  Country: US (occurrence: US)
  Receive Date: 20250508
  Receipt Date: 20250729
  Transmission Date: 20251021
  Serious: No
  Sender: SANDOZ
  Company Number: US-SANDOZ-SDZ2025US028174

PATIENT
  Age: 20 Year
  Sex: Female

DRUGS (2)
  1. HYRIMOZ [Suspect]
     Active Substance: ADALIMUMAB-ADAZ
     Indication: Product used for unknown indication
     Dosage: 40 MG, QW, SOLUTION FOR INJECTION IN PRE-FILLED PEN
     Route: 065
     Dates: start: 20250427
  2. HYRIMOZ [Suspect]
     Active Substance: ADALIMUMAB-ADAZ
     Indication: Product used for unknown indication
     Dosage: 40 MG, QW, SOLUTION FOR INJECTION IN PRE-FILLED PEN
     Route: 065
     Dates: start: 20250427

REACTIONS (3)
  - Accidental exposure to product [Unknown]
  - Circumstance or information capable of leading to medication error [Unknown]
  - Device delivery system issue [Unknown]

NARRATIVE: CASE EVENT DATE: 20250427
